FAERS Safety Report 10146565 (Version 3)
Quarter: 2014Q2

REPORT INFORMATION
  Report Type: Spontaneous
  Country: JP (occurrence: JP)
  Receive Date: 20140501
  Receipt Date: 20140519
  Transmission Date: 20141212
  Serious: Yes (Other)
  Sender: FDA-Public Use
  Company Number: JP-GILEAD-2013-0077918

PATIENT
  Age: 54 Year
  Sex: Male
  Weight: 66 kg

DRUGS (8)
  1. HEPSERA [Suspect]
     Indication: CHRONIC HEPATITIS B
     Dosage: 10 MG, QD
     Route: 048
     Dates: start: 20040623, end: 20121016
  2. ZEFFIX [Suspect]
     Indication: CHRONIC HEPATITIS B
     Dosage: 100MG PER DAY
     Route: 048
     Dates: start: 200101, end: 20121016
  3. EPIVIR-HBV [Concomitant]
     Indication: CHRONIC HEPATITIS B
     Route: 048
     Dates: start: 2001
  4. BLOPRESS [Concomitant]
     Indication: HYPERTENSION
     Dosage: 4MG PER DAY
     Route: 048
  5. BLOPRESS [Concomitant]
     Dosage: 4MG PER DAY
     Route: 048
  6. BLOPRESS [Concomitant]
     Dosage: 4MG PER DAY
     Route: 048
  7. BLOPRESS [Concomitant]
     Dosage: 4MG PER DAY
     Route: 048
  8. ENTECAVIR [Concomitant]
     Indication: CHRONIC HEPATITIS B
     Dosage: 1 MG, QD
     Route: 065
     Dates: start: 20121016

REACTIONS (19)
  - Drug resistance [Unknown]
  - Back pain [Recovering/Resolving]
  - Arthralgia [Recovering/Resolving]
  - Chest pain [Unknown]
  - Arthralgia [Unknown]
  - Renal glycosuria [Unknown]
  - Bone pain [Unknown]
  - Blood alkaline phosphatase increased [Unknown]
  - Beta 2 microglobulin increased [Unknown]
  - Bone scan abnormal [Recovering/Resolving]
  - Osteomalacia [Recovering/Resolving]
  - Renal impairment [Recovering/Resolving]
  - Hypophosphataemia [Unknown]
  - Renal tubular disorder [Recovering/Resolving]
  - Hypouricaemia [Unknown]
  - Fanconi syndrome acquired [Recovering/Resolving]
  - Urine uric acid increased [Unknown]
  - Protein urine [Unknown]
  - Glucose urine present [Unknown]
